FAERS Safety Report 6585348-7 (Version None)
Quarter: 2010Q1

REPORT INFORMATION
  Report Type: 
  Country: None (occurrence: None)
  Receive Date: 20100216
  Receipt Date: 20100216
  Transmission Date: 20100710
  Serious: No
  Sender: FDA-Public Use
  Company Number: None

PATIENT
  Age: 5 Year
  Sex: Female

DRUGS (1)
  1. ADDERALL 30 [Suspect]
     Indication: ATTENTION DEFICIT/HYPERACTIVITY DISORDER
     Dosage: 30 MG Q AM ORAL 5-8 YRS AGO
     Route: 048

REACTIONS (3)
  - DISTURBANCE IN ATTENTION [None]
  - DRUG EFFECT DECREASED [None]
  - PRODUCT SUBSTITUTION ISSUE [None]
